FAERS Safety Report 21728957 (Version 11)
Quarter: 2024Q1

REPORT INFORMATION
  Report Type: Report from Study
  Country: US (occurrence: US)
  Receive Date: 20221214
  Receipt Date: 20240221
  Transmission Date: 20240410
  Serious: Yes (Hospitalization, Other)
  Sender: FDA-Public Use
  Company Number: US-ABBVIE-4236044

PATIENT
  Age: 68 Year
  Sex: Male
  Weight: 84 kg

DRUGS (5)
  1. HUMIRA [Suspect]
     Active Substance: ADALIMUMAB
     Indication: Psoriatic arthropathy
     Dosage: CITRATE FREE FORM STRENGTH: 40 MILLIGRAM
     Route: 058
  2. HUMIRA [Suspect]
     Active Substance: ADALIMUMAB
     Dosage: FORM STRENGTH: 40 MG?CITRATE FREE
     Route: 058
  3. HUMIRA [Suspect]
     Active Substance: ADALIMUMAB
     Dosage: FORM STRENGTH: 40 MG?CITRATE FREE
     Route: 058
     Dates: start: 20220707
  4. HUMIRA [Suspect]
     Active Substance: ADALIMUMAB
     Dosage: FORM STRENGTH: 40 MG, CITRATE FREE
     Route: 058
  5. HUMIRA [Suspect]
     Active Substance: ADALIMUMAB
     Dosage: FORM STRENGTH: 40 MG, CITRATE FREE
     Route: 058

REACTIONS (17)
  - Foot operation [Not Recovered/Not Resolved]
  - Lung disorder [Unknown]
  - Psoriasis [Unknown]
  - Cardiac ablation [Unknown]
  - Spinal pain [Unknown]
  - Fall [Unknown]
  - Drug ineffective [Unknown]
  - Formication [Unknown]
  - Back pain [Not Recovered/Not Resolved]
  - Spinal disorder [Not Recovered/Not Resolved]
  - Musculoskeletal disorder [Not Recovered/Not Resolved]
  - Atrial fibrillation [Unknown]
  - Inflammation [Unknown]
  - Pain [Unknown]
  - Arthralgia [Unknown]
  - Arthralgia [Unknown]
  - Myocardial infarction [Unknown]

NARRATIVE: CASE EVENT DATE: 20221210
